FAERS Safety Report 7379288-3 (Version None)
Quarter: 2011Q1

REPORT INFORMATION
  Report Type: 
  Country: None (occurrence: None)
  Receive Date: 20110329
  Receipt Date: 20110225
  Transmission Date: 20110831
  Serious: Yes (Other)
  Sender: FDA-Public Use
  Company Number: NL-AMGEN-NLDSP2010008853

PATIENT
  Age: 67 Year
  Sex: Male

DRUGS (4)
  1. CALCIUM [Concomitant]
     Dosage: UNK
  2. IRON [Concomitant]
     Dosage: UNK
  3. ENBREL [Suspect]
     Indication: PUSTULAR PSORIASIS
     Dosage: 50 MG, 2X/WEEK
     Dates: start: 20100601
  4. VITAMIN A [Concomitant]
     Dosage: UNK

REACTIONS (5)
  - OEDEMA [None]
  - PNEUMONIA [None]
  - PSORIASIS [None]
  - HYPERHIDROSIS [None]
  - WEIGHT INCREASED [None]
